FAERS Safety Report 8280969-8 (Version None)
Quarter: 2012Q2

REPORT INFORMATION
  Report Type: 
  Country: None (occurrence: None)
  Receive Date: 20120412
  Receipt Date: 20120406
  Transmission Date: 20120825
  Serious: Yes (Hospitalization, Other)
  Sender: FDA-Public Use
  Company Number: US-ABBOTT-12P-163-0922674-00

PATIENT
  Sex: Female
  Weight: 99.88 kg

DRUGS (5)
  1. HUMIRA [Suspect]
     Dates: start: 20120301, end: 20120406
  2. PREDNISONE TAB [Concomitant]
     Indication: RHEUMATOID ARTHRITIS
  3. SALSALATE [Concomitant]
     Indication: OSTEOARTHRITIS
  4. PILOCARPINE [Concomitant]
     Indication: SJOGREN'S SYNDROME
  5. HUMIRA [Suspect]
     Indication: RHEUMATOID ARTHRITIS
     Route: 058
     Dates: start: 20030101, end: 20120101

REACTIONS (8)
  - POSTOPERATIVE WOUND INFECTION [None]
  - WEIGHT BEARING DIFFICULTY [None]
  - INCISIONAL DRAINAGE [None]
  - NASOPHARYNGITIS [None]
  - GAIT DISTURBANCE [None]
  - ARTHRALGIA [None]
  - IMPAIRED HEALING [None]
  - DERMATITIS CONTACT [None]
